FAERS Safety Report 9843386 (Version 1)
Quarter: 2013Q4

REPORT INFORMATION
  Report Type: Spontaneous
  Country: US (occurrence: None)
  Receive Date: 20131223
  Receipt Date: 20131223
  Transmission Date: 20140711
  Serious: Yes (Other)
  Sender: FDA-Public Use
  Company Number: 218560LEO

PATIENT
  Age: 62 Year
  Sex: Male

DRUGS (2)
  1. PICATO [Suspect]
     Indication: ACTINIC KERATOSIS
     Route: 061
     Dates: start: 201208, end: 201208
  2. DEXTROAMPHETAMINE (DEXAMFETAMINE) [Concomitant]

REACTIONS (7)
  - Skin burning sensation [None]
  - Pain [None]
  - Headache [None]
  - Nausea [None]
  - Chills [None]
  - Skin exfoliation [None]
  - Drug administered at inappropriate site [None]
